FAERS Safety Report 25371962 (Version 1)
Quarter: 2025Q2

REPORT INFORMATION
  Report Type: Spontaneous
  Country: GB (occurrence: GB)
  Receive Date: 20250529
  Receipt Date: 20250529
  Transmission Date: 20250717
  Serious: Yes (Hospitalization, Disabling, Other)
  Sender: AUROBINDO
  Company Number: GB-MHRA-MED-202505181335016280-KGQVT

PATIENT
  Age: 31 Year
  Sex: Female
  Weight: 83 kg

DRUGS (1)
  1. MIRTAZAPINE [Suspect]
     Active Substance: MIRTAZAPINE
     Indication: Product used for unknown indication
     Route: 065

REACTIONS (5)
  - Swelling [Recovering/Resolving]
  - Peripheral swelling [Recovering/Resolving]
  - Lymphoedema [Recovering/Resolving]
  - Weight increased [Recovering/Resolving]
  - Fatigue [Recovering/Resolving]
